FAERS Safety Report 9853566 (Version 1)
Quarter: 2013Q4

REPORT INFORMATION
  Report Type: Spontaneous
  Country: US (occurrence: None)
  Receive Date: 20131226
  Receipt Date: 20131226
  Transmission Date: 20140711
  Serious: No
  Sender: FDA-Public Use
  Company Number: PHEH2013US016268

PATIENT
  Age: 47 Year
  Sex: Female

DRUGS (6)
  1. GILENYA (FINGOLIMOD) CAPSULE, 0.5MG [Suspect]
     Route: 048
  2. IBUPROFEN (IBUPROFEN) [Concomitant]
  3. ESTROGEN (ESTRADIOL) [Concomitant]
  4. SYNTHROID (LEVOTHYROXINE SODIUM) [Concomitant]
  5. FLUOXETINE (FLUOXETINE) [Concomitant]
  6. BACLOFEN (BACLOFEN) [Concomitant]

REACTIONS (3)
  - Feeling hot [None]
  - Fatigue [None]
  - Dyspnoea [None]
